FAERS Safety Report 25858209 (Version 1)
Quarter: 2025Q3

REPORT INFORMATION
  Report Type: Spontaneous
  Country: EU (occurrence: EU)
  Receive Date: 20250929
  Receipt Date: 20250929
  Transmission Date: 20251021
  Serious: Yes (Other)
  Sender: BAYER HEALTHCARE PHARMACEUTICALS INC.
  Company Number: EU-BAYER-2025A124613

PATIENT
  Age: 79 Year
  Weight: 78 kg

DRUGS (15)
  1. KERENDIA [Suspect]
     Active Substance: FINERENONE
  2. TRANDOLAPRIL [Concomitant]
     Active Substance: TRANDOLAPRIL
  3. CARVEDILOL [Concomitant]
     Active Substance: CARVEDILOL
  4. DAPAGLIFLOZIN [Concomitant]
     Active Substance: DAPAGLIFLOZIN
  5. INSULIN NOS [Concomitant]
     Active Substance: INSULIN NOS
  6. METFORMIN [Concomitant]
     Active Substance: METFORMIN HYDROCHLORIDE
  7. ATORVASTATIN [Concomitant]
     Active Substance: ATORVASTATIN
  8. XARELTO [Concomitant]
     Active Substance: RIVAROXABAN
  9. PERINDOPRIL [Concomitant]
     Active Substance: PERINDOPRIL
  10. AMLODIPINE BESYLATE [Concomitant]
     Active Substance: AMLODIPINE BESYLATE
  11. INDAPAMIDE [Concomitant]
     Active Substance: INDAPAMIDE
  12. RAMIPRIL [Concomitant]
     Active Substance: RAMIPRIL
  13. AMLODIPINE [Concomitant]
     Active Substance: AMLODIPINE BESYLATE
  14. FUROSEMIDE [Concomitant]
     Active Substance: FUROSEMIDE
  15. MOXONIDINE [Concomitant]
     Active Substance: MOXONIDINE

REACTIONS (4)
  - Urinary retention [None]
  - Blood albumin decreased [None]
  - Glomerular filtration rate decreased [None]
  - Proteinuria [None]
